FAERS Safety Report 7903490-2 (Version None)
Quarter: 2011Q4

REPORT INFORMATION
  Report Type: 
  Country: None (occurrence: None)
  Receive Date: 20111109
  Receipt Date: 20111102
  Transmission Date: 20120403
  Serious: Yes (Other)
  Sender: FDA-Public Use
  Company Number: CH-JNJFOC-20111101470

PATIENT
  Age: 55 Year
  Sex: Male

DRUGS (1)
  1. VERMOX [Suspect]
     Indication: HEPATIC INFECTION
     Route: 048
     Dates: start: 19921201, end: 20070101

REACTIONS (1)
  - LYMPHOCYTIC LEUKAEMIA [None]
